FAERS Safety Report 15196234 (Version 1)
Quarter: 2018Q3

REPORT INFORMATION
  Report Type: Spontaneous
  Country: US (occurrence: US)
  Receive Date: 20180626
  Receipt Date: 20180626
  Transmission Date: 20181010
  Serious: Yes (Other)
  Sender: FDA-Public Use
  Company Number: None

PATIENT
  Age: 27 Year
  Sex: Female

DRUGS (1)
  1. BUPRENORPHINE ?NALOXONE TABLET [Suspect]
     Active Substance: BUPRENORPHINE\NALOXONE
     Indication: DRUG USE DISORDER
     Dosage: OTHER FREQUENCY:2 TABS DAILY;8?2 MG, 2 TABS DAILY, ORAL, SL?
     Route: 048
     Dates: start: 20180502

REACTIONS (5)
  - Rash maculo-papular [None]
  - Anxiety [None]
  - Pruritus generalised [None]
  - Lacrimation increased [None]
  - Nausea [None]

NARRATIVE: CASE EVENT DATE: 20180612
